FAERS Safety Report 20490368 (Version 2)
Quarter: 2024Q3

REPORT INFORMATION
  Report Type: Spontaneous
  Country: GB (occurrence: GB)
  Receive Date: 20220218
  Receipt Date: 20240815
  Transmission Date: 20241016
  Serious: Yes (Hospitalization)
  Sender: TAKEDA
  Company Number: GB-TAKEDA-2022TUS009749

PATIENT
  Sex: Female

DRUGS (2)
  1. CUVITRU [Suspect]
     Active Substance: HUMAN IMMUNOGLOBULIN G
     Indication: Product used for unknown indication
     Dosage: UNK UNK, 1/WEEK
     Route: 050
  2. CUVITRU [Suspect]
     Active Substance: HUMAN IMMUNOGLOBULIN G
     Dosage: 7 GRAM, 1/WEEK
     Route: 058

REACTIONS (2)
  - Hip arthroplasty [Unknown]
  - Wrist fracture [Unknown]
